FAERS Safety Report 23541545 (Version 4)
Quarter: 2024Q3

REPORT INFORMATION
  Report Type: Report from Study
  Country: NL (occurrence: NL)
  Receive Date: 20240219
  Receipt Date: 20240926
  Transmission Date: 20241017
  Serious: Yes (Hospitalization, Other)
  Sender: ABBVIE
  Company Number: NL-ABBVIE-5645091

PATIENT
  Sex: Male

DRUGS (12)
  1. CARBIDOPA\LEVODOPA [Suspect]
     Active Substance: CARBIDOPA\LEVODOPA
     Indication: Parkinson^s disease
     Dosage: MD: 4.0 ML, CD: 4.9 ML/H, ED: 3.0 ML; ND: 0.0 ML, CND: 4.4 ML/H, END: 3.0 ML
     Route: 050
     Dates: start: 20240912
  2. CARBIDOPA\LEVODOPA [Suspect]
     Active Substance: CARBIDOPA\LEVODOPA
     Dosage: ND: 4.0 ML, CND: 3.9 ML/H, END: 3.0 ML?DURATION TEXT: REMAINS AT 16 HOURS
     Route: 050
     Dates: start: 20230927, end: 20231123
  3. CARBIDOPA\LEVODOPA [Suspect]
     Active Substance: CARBIDOPA\LEVODOPA
     Dosage: ND: 4.0 ML, CND: 3.9 ML/H, END: 3.0 ML?DURATION TEXT: REMAINS AT 24 HOURS
     Route: 050
     Dates: start: 20240215, end: 20240325
  4. CARBIDOPA\LEVODOPA [Suspect]
     Active Substance: CARBIDOPA\LEVODOPA
     Dosage: DURATION TEXT: REMAINS AT 24 HOURS
     Route: 050
  5. CARBIDOPA\LEVODOPA [Suspect]
     Active Substance: CARBIDOPA\LEVODOPA
     Dosage: MD: 0.0 ML, CD: 4.9 ML/H, ED: 3.0 ML?DURATION TEXT: REMAINS AT 24 HOURS
     Route: 050
     Dates: start: 20230927, end: 20230927
  6. CARBIDOPA\LEVODOPA [Suspect]
     Active Substance: CARBIDOPA\LEVODOPA
     Dosage: MD: 0.0 ML, CD: 4.9 ML/H, ED: 3.0 ML;?DURATION TEXT: REMAINS AT 16 HOURS
     Route: 050
     Dates: start: 20240215, end: 20240215
  7. CARBIDOPA\LEVODOPA [Suspect]
     Active Substance: CARBIDOPA\LEVODOPA
     Route: 050
     Dates: start: 20161028
  8. CARBIDOPA\LEVODOPA [Suspect]
     Active Substance: CARBIDOPA\LEVODOPA
     Dosage: MD: 0.0 ML, CD: 4.9 ML/H, ED: 3.0 ML; ND: 4.0 ML, CND: 3.9 ML/H, END: 3.0 ML?DURATION TEXT: REMAI...
     Route: 050
     Dates: start: 20231123, end: 20240215
  9. CARBIDOPA\LEVODOPA [Suspect]
     Active Substance: CARBIDOPA\LEVODOPA
     Dosage: ND: 4.0 ML, CND: 4.0 ML/H, END: 3.0 ML, REMAINS AT 24 HOURS
     Route: 050
     Dates: start: 20240325, end: 20240912
  10. POLYETHYLENE GLYCOLS [Concomitant]
     Active Substance: POLYETHYLENE GLYCOLS
     Indication: Gastrointestinal motility disorder
     Dosage: WHEN NEEDED
  11. MOVICOLON [Concomitant]
     Active Substance: POLYETHYLENE GLYCOL 3350\POTASSIUM CHLORIDE\SODIUM BICARBONATE\SODIUM CHLORIDE
     Indication: Abnormal faeces
  12. CLONAZEPAM [Concomitant]
     Active Substance: CLONAZEPAM
     Indication: Restlessness
     Dosage: AT 21:00

REACTIONS (38)
  - Viral diarrhoea [Recovered/Resolved]
  - Freezing phenomenon [Not Recovered/Not Resolved]
  - Muscle rigidity [Not Recovered/Not Resolved]
  - Incoherent [Not Recovered/Not Resolved]
  - Unevaluable event [Not Recovered/Not Resolved]
  - Memory impairment [Not Recovered/Not Resolved]
  - Dyskinesia [Not Recovered/Not Resolved]
  - Loss of personal independence in daily activities [Not Recovered/Not Resolved]
  - Tremor [Not Recovered/Not Resolved]
  - Cognitive disorder [Not Recovered/Not Resolved]
  - Fall [Recovered/Resolved]
  - On and off phenomenon [Not Recovered/Not Resolved]
  - Urinary incontinence [Not Recovered/Not Resolved]
  - Device kink [Not Recovered/Not Resolved]
  - Agitation [Not Recovered/Not Resolved]
  - Restlessness [Not Recovered/Not Resolved]
  - Nocturia [Not Recovered/Not Resolved]
  - Hallucination, visual [Recovered/Resolved]
  - Weight decreased [Not Recovered/Not Resolved]
  - Urinary retention [Not Recovered/Not Resolved]
  - Gait disturbance [Not Recovered/Not Resolved]
  - Therapeutic response shortened [Not Recovered/Not Resolved]
  - Initial insomnia [Not Recovered/Not Resolved]
  - Mobility decreased [Not Recovered/Not Resolved]
  - Communication disorder [Not Recovered/Not Resolved]
  - Device issue [Not Recovered/Not Resolved]
  - Feeding disorder [Not Recovered/Not Resolved]
  - Product dose omission issue [Not Recovered/Not Resolved]
  - General physical health deterioration [Not Recovered/Not Resolved]
  - Unevaluable event [Not Recovered/Not Resolved]
  - Therapeutic product effect incomplete [Not Recovered/Not Resolved]
  - Off label use [Not Recovered/Not Resolved]
  - Fatigue [Not Recovered/Not Resolved]
  - Anal incontinence [Not Recovered/Not Resolved]
  - Confusional state [Not Recovered/Not Resolved]
  - Device dislocation [Not Recovered/Not Resolved]
  - Incorrect route of product administration [Unknown]
  - Device leakage [Not Recovered/Not Resolved]

NARRATIVE: CASE EVENT DATE: 20230101
